FAERS Safety Report 6356013-6 (Version None)
Quarter: 2009Q3

REPORT INFORMATION
  Report Type: 
  Country: None (occurrence: None)
  Receive Date: 20090915
  Receipt Date: 20071116
  Transmission Date: 20100115
  Serious: Yes (Other)
  Sender: FDA-Public Use
  Company Number: US-ASTRAZENECA-2006UW27876

PATIENT
  Age: 43 Year
  Sex: Female
  Weight: 136.8 kg

DRUGS (6)
  1. SEROQUEL [Suspect]
     Indication: SLEEP DISORDER
     Route: 048
     Dates: start: 20000101, end: 20050401
  2. SEROQUEL [Suspect]
     Indication: DEPRESSION
     Route: 048
     Dates: start: 20000101, end: 20050401
  3. SEROQUEL [Suspect]
     Route: 048
     Dates: start: 20030402
  4. SEROQUEL [Suspect]
     Route: 048
     Dates: start: 20030402
  5. GLUCOPHAGE XR [Concomitant]
     Route: 048
     Dates: start: 20030811
  6. HYDROCODONE BITARTRATE AND ACETAMINOPHEN [Concomitant]
     Dosage: 10 MG/650 MG Q 4-6 H PRN
     Route: 048
     Dates: start: 20030811

REACTIONS (3)
  - DIABETES MELLITUS [None]
  - MONONEUROPATHY [None]
  - TYPE 2 DIABETES MELLITUS [None]
